FAERS Safety Report 5606597-8 (Version None)
Quarter: 2008Q1

REPORT INFORMATION
  Report Type: 
  Country: None (occurrence: None)
  Receive Date: 20080129
  Receipt Date: 20080124
  Transmission Date: 20080703
  Serious: Yes (Other)
  Sender: FDA-Public Use
  Company Number: US-ASTRAZENECA-2007UW27865

PATIENT
  Sex: Male

DRUGS (2)
  1. TOPROL-XL [Suspect]
     Route: 048
  2. PRINIVIL [Suspect]

REACTIONS (3)
  - AORTIC ANEURYSM [None]
  - CAROTID ARTERY OCCLUSION [None]
  - OEDEMA PERIPHERAL [None]
